FAERS Safety Report 11888728 (Version 1)
Quarter: 2016Q1

REPORT INFORMATION
  Report Type: Spontaneous
  Country: US (occurrence: US)
  Receive Date: 20160105
  Receipt Date: 20160105
  Transmission Date: 20160526
  Serious: Yes (Hospitalization)
  Sender: FDA-Public Use
  Company Number: US-SA-2015SA222626

PATIENT
  Age: 14 Year
  Sex: Male

DRUGS (6)
  1. ENOXAPARIN SODIUM. [Suspect]
     Active Substance: ENOXAPARIN SODIUM
     Indication: THROMBOSIS
     Route: 065
  2. MEROPENEM. [Suspect]
     Active Substance: MEROPENEM
     Indication: SINUSITIS
     Route: 065
  3. IBUPROFEN. [Concomitant]
     Active Substance: IBUPROFEN
     Indication: INFLUENZA
  4. AMANTADINE [Concomitant]
     Active Substance: AMANTADINE
     Indication: INFLUENZA
  5. VANCOMYCIN [Concomitant]
     Active Substance: VANCOMYCIN
     Indication: SINUSITIS
     Dosage: 6-WEEK COURSE
     Route: 042
  6. HEPARIN [Concomitant]
     Active Substance: HEPARIN SODIUM

REACTIONS (5)
  - Haemoglobin decreased [Unknown]
  - White blood cell count decreased [Unknown]
  - Bone marrow failure [Unknown]
  - Epistaxis [Recovering/Resolving]
  - Platelet count decreased [Unknown]
